FAERS Safety Report 12297406 (Version 1)
Quarter: 2016Q2

REPORT INFORMATION
  Report Type: Spontaneous
  Country: US (occurrence: US)
  Receive Date: 20160422
  Receipt Date: 20160422
  Transmission Date: 20160815
  Serious: No
  Sender: FDA-Public Use
  Company Number: US-STALLERGENES SAS-1050902

PATIENT
  Age: 53 Year
  Sex: Female

DRUGS (1)
  1. ORALAIR [Suspect]
     Active Substance: ANTHOXANTHUM ODORATUM POLLEN\DACTYLIS GLOMERATA POLLEN\LOLIUM PERENNE POLLEN\PHLEUM PRATENSE POLLEN\POA PRATENSIS POLLEN
     Indication: RHINITIS ALLERGIC
     Route: 060
     Dates: start: 20160204

REACTIONS (3)
  - Ocular hyperaemia [Recovering/Resolving]
  - Abnormal sensation in eye [Recovering/Resolving]
  - Eye oedema [Recovered/Resolved]

NARRATIVE: CASE EVENT DATE: 20160229
